FAERS Safety Report 19130162 (Version 1)
Quarter: 2021Q2

REPORT INFORMATION
  Report Type: Spontaneous
  Country: US (occurrence: US)
  Receive Date: 20210413
  Receipt Date: 20210413
  Transmission Date: 20210717
  Serious: No
  Sender: FDA-Public Use
  Company Number: US-CORCEPT THERAPEUTICS INC.-US-2020CRT000249

PATIENT
  Age: 70 Year
  Sex: Female
  Weight: 62.59 kg

DRUGS (7)
  1. VITAMIN D                          /00107901/ [Concomitant]
     Active Substance: ERGOCALCIFEROL
     Indication: PRODUCT USED FOR UNKNOWN INDICATION
     Dosage: UNK
  2. SYNTHROID [Concomitant]
     Active Substance: LEVOTHYROXINE SODIUM
     Indication: PRODUCT USED FOR UNKNOWN INDICATION
     Dosage: UNK
  3. LIPITOR [Concomitant]
     Active Substance: ATORVASTATIN CALCIUM
     Indication: PRODUCT USED FOR UNKNOWN INDICATION
     Dosage: UNK
  4. KORLYM [Suspect]
     Active Substance: MIFEPRISTONE
     Indication: PITUITARY-DEPENDENT CUSHING^S SYNDROME
     Dosage: 300 MG, QD
     Route: 048
     Dates: start: 20200220, end: 20200304
  5. ROCALTROL [Concomitant]
     Active Substance: CALCITRIOL
     Indication: PRODUCT USED FOR UNKNOWN INDICATION
     Dosage: UNK
  6. COENZYME Q10 [Concomitant]
     Active Substance: DIETARY SUPPLEMENT\UBIDECARENONE
     Indication: PRODUCT USED FOR UNKNOWN INDICATION
     Dosage: UNK
  7. KORLYM [Suspect]
     Active Substance: MIFEPRISTONE
     Dosage: 600 MG, QD
     Route: 048
     Dates: start: 20200305, end: 20200330

REACTIONS (8)
  - Fatigue [Not Recovered/Not Resolved]
  - Stress [Not Recovered/Not Resolved]
  - Constipation [Recovered/Resolved]
  - Heart rate increased [Recovered/Resolved]
  - Asthenia [Not Recovered/Not Resolved]
  - Blood potassium decreased [Unknown]
  - Blood pressure increased [Recovered/Resolved]
  - Headache [Unknown]

NARRATIVE: CASE EVENT DATE: 202002
